FAERS Safety Report 11248419 (Version 2)
Quarter: 2015Q3

REPORT INFORMATION
  Report Type: Spontaneous
  Country: SI (occurrence: SI)
  Receive Date: 20150626
  Receipt Date: 20150717
  Transmission Date: 20151125
  Serious: Yes (Life-Threatening, Hospitalization)
  Sender: FDA-Public Use
  Company Number: WIL-005-15-SI

PATIENT
  Age: 6 Year
  Sex: Female
  Weight: 23 kg

DRUGS (3)
  1. UGUROL [Concomitant]
     Indication: HAEMORRHAGE PROPHYLAXIS
     Route: 042
     Dates: start: 20150525
  2. WILATE [Suspect]
     Active Substance: HUMAN COAGULATION FACTOR VIII/VON WILLEBRAND FACTOR COMPLEX
     Indication: VON WILLEBRAND^S DISEASE
     Dosage: 25-MAY-2015 1500 IU + 500 IU, 26-MAY-2015 1500 IU
     Route: 042
     Dates: start: 20150525, end: 20150526
  3. AMOKSIKLAV [Concomitant]
     Active Substance: AMOXICILLIN\CLAVULANATE POTASSIUM
     Indication: INFECTION
     Dates: start: 20150518

REACTIONS (5)
  - Infection [None]
  - Drug ineffective [Recovered/Resolved]
  - Local swelling [None]
  - Post procedural haemorrhage [Recovered/Resolved]
  - Von Willebrand^s factor inhibition [Unknown]

NARRATIVE: CASE EVENT DATE: 20150525
